FAERS Safety Report 5927331-8 (Version None)
Quarter: 2008Q4

REPORT INFORMATION
  Report Type: 
  Country: None (occurrence: None)
  Receive Date: 20081020
  Receipt Date: 20081007
  Transmission Date: 20090506
  Serious: Yes (Other)
  Sender: FDA-Public Use
  Company Number: TRP_05667_2008

PATIENT
  Sex: Female

DRUGS (4)
  1. INFERGEN [Suspect]
     Indication: HEPATITIS C
     Dosage: (15?G 5X/WEEK SUBCUTANEOUS)
     Route: 058
     Dates: start: 20070718
  2. RIBAVIRIN [Suspect]
     Indication: HEPATITIS C
     Dosage: (1000 MG, [400 MG IN THE AM AND 600 MG IN THE PM] ORAL)
     Route: 048
     Dates: start: 20070718
  3. POTASSIUM CHLORIDE [Concomitant]
  4. ANTIHYPERTENSIVES [Concomitant]

REACTIONS (7)
  - ABDOMINAL DISCOMFORT [None]
  - CARDIAC STRESS TEST ABNORMAL [None]
  - CORONARY ARTERY OCCLUSION [None]
  - ELECTROCARDIOGRAM CHANGE [None]
  - PAIN [None]
  - TREATMENT NONCOMPLIANCE [None]
  - VOMITING [None]
